FAERS Safety Report 7989513-3 (Version None)
Quarter: 2011Q4

REPORT INFORMATION
  Report Type: 
  Country: None (occurrence: None)
  Receive Date: 20111007
  Receipt Date: 20110628
  Transmission Date: 20120403
  Serious: No
  Sender: FDA-Public Use
  Company Number: 2011HGS-002394

PATIENT
  Age: 31 Year

DRUGS (1)
  1. BENLYSTA [Suspect]
     Dosage: 10 MG/KG, 1 IN 28 D, INTRAVENOUS DRIP
     Route: 041
     Dates: start: 20110621

REACTIONS (6)
  - NAUSEA [None]
  - INFUSION RELATED REACTION [None]
  - CHEST DISCOMFORT [None]
  - FEELING HOT [None]
  - HOT FLUSH [None]
  - FEELING ABNORMAL [None]
